FAERS Safety Report 21833179 (Version 1)
Quarter: 2023Q1

REPORT INFORMATION
  Report Type: Spontaneous
  Country: US (occurrence: US)
  Receive Date: 20230106
  Receipt Date: 20230106
  Transmission Date: 20230417
  Serious: No
  Sender: FDA-Public Use
  Company Number: US-009507513-2301USA000531

PATIENT
  Age: 22 Year
  Sex: Male

DRUGS (2)
  1. CUBICIN [Suspect]
     Active Substance: DAPTOMYCIN
     Indication: Staphylococcal bacteraemia
     Dosage: UNK
     Route: 042
  2. CEFTAROLINE [Suspect]
     Active Substance: CEFTAROLINE
     Indication: Staphylococcal bacteraemia
     Dosage: UNK
     Route: 042

REACTIONS (1)
  - Drug ineffective [Unknown]
